FAERS Safety Report 19463353 (Version 3)
Quarter: 2021Q3

REPORT INFORMATION
  Report Type: Spontaneous
  Country: RU (occurrence: RU)
  Receive Date: 20210625
  Receipt Date: 20210804
  Transmission Date: 20211014
  Serious: Yes (Other)
  Sender: FDA-Public Use
  Company Number: RU-VALIDUS PHARMACEUTICALS LLC-RU-2021VAL001293

PATIENT
  Age: 75 Year
  Sex: Female
  Weight: 85 kg

DRUGS (2)
  1. TRENTAL [Suspect]
     Active Substance: PENTOXIFYLLINE
     Dosage: 400 MILLIGRAM, QD
     Route: 048
     Dates: start: 20210615
  2. TRENTAL [Suspect]
     Active Substance: PENTOXIFYLLINE
     Indication: POOR PERIPHERAL CIRCULATION
     Dosage: 400 MILLIGRAM, BID
     Route: 048
     Dates: start: 20201118, end: 20210615

REACTIONS (2)
  - Haematochezia [Not Recovered/Not Resolved]
  - Nausea [Not Recovered/Not Resolved]

NARRATIVE: CASE EVENT DATE: 202012
